FAERS Safety Report 9431538 (Version 1)
Quarter: 2013Q3

REPORT INFORMATION
  Report Type: Report from Study
  Country: CA (occurrence: CA)
  Receive Date: 20130731
  Receipt Date: 20130731
  Transmission Date: 20140515
  Serious: Yes (Other)
  Sender: FDA-Public Use
  Company Number: CA-ROCHE-1254348

PATIENT
  Sex: Male
  Weight: 111.6 kg

DRUGS (17)
  1. ACTEMRA [Suspect]
     Indication: RHEUMATOID ARTHRITIS
     Route: 042
     Dates: start: 20130417
  2. PREDNISONE [Concomitant]
  3. LIPITOR [Concomitant]
  4. EZETROL [Concomitant]
  5. ZOPICLONE [Concomitant]
  6. METFORMIN [Concomitant]
     Route: 065
  7. VICTOZA [Concomitant]
  8. METHOTREXATE [Concomitant]
  9. ACETYLSALICYLIC ACID [Concomitant]
  10. ATENOLOL [Concomitant]
  11. LYRICA [Concomitant]
  12. NEXIUM [Concomitant]
  13. FLOMAX (CANADA) [Concomitant]
  14. SYMBICORT [Concomitant]
  15. FLONASE [Concomitant]
  16. VENTOLIN [Concomitant]
  17. FENTANYL [Concomitant]

REACTIONS (1)
  - Spinal fracture [Unknown]
